FAERS Safety Report 12589132 (Version 2)
Quarter: 2016Q3

REPORT INFORMATION
  Report Type: Spontaneous
  Country: US (occurrence: US)
  Receive Date: 20160725
  Receipt Date: 20160801
  Transmission Date: 20161109
  Serious: No
  Sender: FDA-Public Use
  Company Number: US-TEIKOKU PHARMA USA-TPU2016-00488

PATIENT
  Age: 56 Year
  Sex: Male
  Weight: 85.35 kg

DRUGS (9)
  1. OPANA ER [Suspect]
     Active Substance: OXYMORPHONE HYDROCHLORIDE
     Indication: PAIN
     Route: 048
     Dates: start: 2009
  2. OPANA [Suspect]
     Active Substance: OXYMORPHONE HYDROCHLORIDE
     Indication: PAIN
     Route: 048
  3. OPANA ER [Suspect]
     Active Substance: OXYMORPHONE HYDROCHLORIDE
     Route: 048
     Dates: start: 20160623, end: 20160718
  4. OPANA ER [Suspect]
     Active Substance: OXYMORPHONE HYDROCHLORIDE
     Dates: start: 20160718
  5. LIDODERM [Suspect]
     Active Substance: LIDOCAINE
     Indication: SPINAL PAIN
     Route: 061
     Dates: start: 2011
  6. CYMBALTA [Concomitant]
     Active Substance: DULOXETINE HYDROCHLORIDE
     Route: 048
     Dates: start: 2009
  7. ADVIL [Concomitant]
     Active Substance: IBUPROFEN
     Indication: PAIN
     Dosage: 2-3 PER DAY AS NEEDED
     Dates: start: 201607
  8. GENERIC CLARITIN [Concomitant]
     Indication: HYPERSENSITIVITY
  9. AXERON [Concomitant]
     Dates: start: 2013

REACTIONS (7)
  - Feeling abnormal [Recovered/Resolved]
  - Insomnia [Recovered/Resolved]
  - Abnormal behaviour [Recovered/Resolved]
  - Feeling jittery [Recovered/Resolved]
  - Pyrexia [Recovered/Resolved]
  - Drug ineffective [None]
  - Withdrawal syndrome [Recovered/Resolved]

NARRATIVE: CASE EVENT DATE: 201607
